FAERS Safety Report 7208784-4 (Version None)
Quarter: 2011Q1

REPORT INFORMATION
  Report Type: 
  Country: None (occurrence: None)
  Receive Date: 20110104
  Receipt Date: 20101230
  Transmission Date: 20110831
  Serious: Yes (Other)
  Sender: FDA-Public Use
  Company Number: ES-BRACCO-000380

PATIENT
  Age: 61 Year
  Sex: Male
  Weight: 77 kg

DRUGS (3)
  1. MULTIHANCE [Suspect]
     Indication: METASTASIS
     Route: 042
     Dates: start: 20101220, end: 20101220
  2. MULTIHANCE [Suspect]
     Indication: NUCLEAR MAGNETIC RESONANCE IMAGING BRAIN
     Route: 042
     Dates: start: 20101220, end: 20101220
  3. MULTIHANCE [Suspect]
     Indication: ASTHENIA
     Route: 042
     Dates: start: 20101220, end: 20101220

REACTIONS (6)
  - LARYNGEAL OEDEMA [None]
  - PRURITUS [None]
  - NERVOUSNESS [None]
  - URTICARIA [None]
  - FACE OEDEMA [None]
  - RASH [None]
